FAERS Safety Report 7132897-9 (Version None)
Quarter: 2010Q4

REPORT INFORMATION
  Report Type: 
  Country: None (occurrence: None)
  Receive Date: 20101202
  Receipt Date: 20101130
  Transmission Date: 20110411
  Serious: No
  Sender: FDA-Public Use
  Company Number: US-PFIZER INC-2010160943

PATIENT
  Sex: Female
  Weight: 61.224 kg

DRUGS (4)
  1. CHANTIX [Suspect]
     Indication: SMOKING CESSATION THERAPY
     Dosage: 0.5 MG, 1X/DAY
     Route: 048
     Dates: start: 20101101
  2. CHANTIX [Suspect]
     Dosage: 1 MG, 2X/DAY
     Route: 048
     Dates: start: 20101101, end: 20101101
  3. LIPITOR [Concomitant]
     Indication: BLOOD CHOLESTEROL INCREASED
     Dosage: UNK
  4. LEXAPRO [Concomitant]
     Indication: DEPRESSION
     Dosage: UNK

REACTIONS (4)
  - ACTIVITIES OF DAILY LIVING IMPAIRED [None]
  - LETHARGY [None]
  - SOMNOLENCE [None]
  - TREMOR [None]
